FAERS Safety Report 9424274 (Version 1)
Quarter: 2013Q3

REPORT INFORMATION
  Report Type: Spontaneous
  Country: US (occurrence: US)
  Receive Date: 20130729
  Receipt Date: 20130729
  Transmission Date: 20140515
  Serious: Yes (Other)
  Sender: FDA-Public Use
  Company Number: US-ACCORD-018710

PATIENT
  Sex: Female

DRUGS (1)
  1. MONTELUKAST [Suspect]
     Indication: PRODUCT USED FOR UNKNOWN INDICATION

REACTIONS (3)
  - Dyspnoea [Unknown]
  - Cough [Unknown]
  - Nasal congestion [Unknown]
